FAERS Safety Report 24236875 (Version 1)
Quarter: 2024Q3

REPORT INFORMATION
  Report Type: Report from Study
  Country: EG (occurrence: EG)
  Receive Date: 20240822
  Receipt Date: 20240822
  Transmission Date: 20241016
  Serious: Yes (Hospitalization, Other)
  Sender: SANDOZ
  Company Number: EG-SANDOZ-SDZ2024EG073438

PATIENT
  Sex: Female
  Weight: 57 kg

DRUGS (5)
  1. HYRIMOZ [Suspect]
     Active Substance: ADALIMUMAB-ADAZ
     Indication: Juvenile idiopathic arthritis
     Dosage: 40 MG, QMO
     Route: 058
     Dates: start: 202406
  2. HYRIMOZ [Suspect]
     Active Substance: ADALIMUMAB-ADAZ
     Dosage: 40 MG, Q2W
     Route: 058
     Dates: start: 202406
  3. METHOTREXATE [Suspect]
     Active Substance: METHOTREXATE
     Indication: Juvenile idiopathic arthritis
     Dosage: 6 TABLETS ONCE WEEKLY
     Route: 048
     Dates: end: 2019
  4. CRESTOR [Concomitant]
     Active Substance: ROSUVASTATIN CALCIUM
     Indication: Hypercholesterolaemia
     Dosage: 10 MG, QD
     Route: 048
     Dates: start: 202406
  5. EUTHYROX [Concomitant]
     Active Substance: LEVOTHYROXINE SODIUM
     Indication: Hypothyroidism
     Dosage: 50 MG FOR 5 DAYS AND 100 MG THE OTHER 2 DAYS OF THE WEEK
     Route: 048
     Dates: start: 2020

REACTIONS (12)
  - Gastric ulcer [Not Recovered/Not Resolved]
  - Hypothyroidism [Not Recovered/Not Resolved]
  - Blood glucose abnormal [Recovering/Resolving]
  - Urine analysis abnormal [Not Recovered/Not Resolved]
  - Pain [Recovering/Resolving]
  - Alopecia [Recovering/Resolving]
  - Ovarian cyst [Recovering/Resolving]
  - Dry skin [Recovering/Resolving]
  - Hormone level abnormal [Recovering/Resolving]
  - Weight increased [Recovering/Resolving]
  - Tachycardia [Recovering/Resolving]
  - Panic attack [Recovering/Resolving]

NARRATIVE: CASE EVENT DATE: 20140101
